FAERS Safety Report 15181464 (Version 2)
Quarter: 2018Q3

REPORT INFORMATION
  Report Type: Spontaneous
  Country: US (occurrence: US)
  Receive Date: 20180723
  Receipt Date: 20180914
  Transmission Date: 20181010
  Serious: No
  Sender: FDA-Public Use
  Company Number: US-SA-2018SA196256

PATIENT
  Age: 63 Year
  Sex: Female

DRUGS (19)
  1. AMPHETAMINE [Concomitant]
     Active Substance: AMPHETAMINE
  2. METHOTREXATE. [Concomitant]
     Active Substance: METHOTREXATE
  3. SIMVASTATIN. [Concomitant]
     Active Substance: SIMVASTATIN
  4. CARBAMAZEPINE. [Concomitant]
     Active Substance: CARBAMAZEPINE
  5. PRED FORTE [Concomitant]
     Active Substance: PREDNISOLONE ACETATE
  6. OXYBUTYNIN. [Concomitant]
     Active Substance: OXYBUTYNIN CHLORIDE
  7. OMEPRAZOLE. [Concomitant]
     Active Substance: OMEPRAZOLE
  8. RECLAST [Concomitant]
     Active Substance: ZOLEDRONIC ACID
  9. TIMOLOL. [Concomitant]
     Active Substance: TIMOLOL
  10. VITAMIN D3 [Concomitant]
     Active Substance: CHOLECALCIFEROL
  11. LAMOTRIGINE. [Concomitant]
     Active Substance: LAMOTRIGINE
  12. METOPROLOL. [Concomitant]
     Active Substance: METOPROLOL
  13. TUMS [Concomitant]
     Active Substance: CALCIUM CARBONATE
  14. LEVOXYL [Concomitant]
     Active Substance: LEVOTHYROXINE SODIUM
  15. DOXYCYCLINE. [Concomitant]
     Active Substance: DOXYCYCLINE
  16. AUBAGIO [Suspect]
     Active Substance: TERIFLUNOMIDE
     Dosage: 14 MG, QD
     Route: 048
     Dates: start: 20180329
  17. FOLIC ACID. [Concomitant]
     Active Substance: FOLIC ACID
  18. ZOLOFT [Concomitant]
     Active Substance: SERTRALINE HYDROCHLORIDE
  19. WARFARIN [Concomitant]
     Active Substance: WARFARIN

REACTIONS (4)
  - Palpitations [Unknown]
  - Headache [Unknown]
  - Fatigue [Unknown]
  - Vomiting [Unknown]

NARRATIVE: CASE EVENT DATE: 2018
